FAERS Safety Report 10477633 (Version 1)
Quarter: 2014Q3

REPORT INFORMATION
  Report Type: Spontaneous
  Country: US (occurrence: None)
  Receive Date: 20140925
  Receipt Date: 20140925
  Transmission Date: 20150326
  Serious: Yes (Hospitalization)
  Sender: FDA-Public Use
  Company Number: None

PATIENT
  Age: 67 Year
  Sex: Female
  Weight: 108 kg

DRUGS (1)
  1. SUNITINIB MALATE [Suspect]
     Active Substance: SUNITINIB MALATE
     Dates: start: 20140518

REACTIONS (7)
  - Vomiting [None]
  - Malaise [None]
  - Colitis [None]
  - Abdominal pain [None]
  - Diarrhoea [None]
  - Nausea [None]
  - Blood creatinine increased [None]

NARRATIVE: CASE EVENT DATE: 20140524
